FAERS Safety Report 6848372-2 (Version None)
Quarter: 2010Q3

REPORT INFORMATION
  Report Type: 
  Country: None (occurrence: None)
  Receive Date: 20100716
  Receipt Date: 20100707
  Transmission Date: 20110219
  Serious: Yes (Other)
  Sender: FDA-Public Use
  Company Number: US-ROCHE-714650

PATIENT
  Sex: Male

DRUGS (4)
  1. PEGINTERFERON ALFA-2A [Suspect]
     Indication: HEPATITIS C
     Dosage: WEEK 20;FORM:PRE FILLED SYRINGE;TAKEN ON TUESDAYS
     Route: 065
     Dates: start: 20100223
  2. RIBASPHERE [Suspect]
     Indication: HEPATITIS C
     Dosage: DIVIDED DOSES; WEEK 20
     Route: 065
     Dates: start: 20100223
  3. TRAZODONE HYDROCHLORIDE [Concomitant]
     Indication: DEPRESSION
  4. XANAX [Concomitant]
     Indication: DEPRESSION

REACTIONS (2)
  - BIPOLAR DISORDER [None]
  - SUICIDAL IDEATION [None]
